FAERS Safety Report 8557181-8 (Version None)
Quarter: 2012Q3

REPORT INFORMATION
  Report Type: 
  Country: None (occurrence: None)
  Receive Date: 20120801
  Receipt Date: 20120723
  Transmission Date: 20120928
  Serious: Yes (Hospitalization, Other)
  Sender: FDA-Public Use
  Company Number: PHHY2012BR064709

PATIENT
  Age: 72 Year
  Sex: Female

DRUGS (2)
  1. HYDERGINE [Suspect]
     Indication: AMNESIA
     Dosage: 1 DF DAILY
  2. HYDERGINE [Suspect]
     Indication: COMMUNICATION DISORDER

REACTIONS (4)
  - APNOEA [None]
  - MEMORY IMPAIRMENT [None]
  - MUSCULAR WEAKNESS [None]
  - CEREBROVASCULAR ACCIDENT [None]
